FAERS Safety Report 9055266 (Version 2)
Quarter: 2013Q1

REPORT INFORMATION
  Report Type: Spontaneous
  Country: UA (occurrence: UA)
  Receive Date: 20130206
  Receipt Date: 20130320
  Transmission Date: 20140127
  Serious: Yes (Hospitalization)
  Sender: FDA-Public Use
  Company Number: UA-JNJFOC-20130117292

PATIENT
  Sex: Female

DRUGS (4)
  1. XARELTO [Suspect]
     Indication: ATRIAL FIBRILLATION
     Route: 048
     Dates: start: 20130114
  2. XARELTO [Suspect]
     Indication: CEREBROVASCULAR ACCIDENT PROPHYLAXIS
     Route: 048
     Dates: start: 20130114
  3. XARELTO [Suspect]
     Indication: CARDIOVERSION
     Route: 048
     Dates: start: 20130114
  4. WARFARIN [Concomitant]
     Indication: CARDIOVERSION
     Route: 048
     Dates: start: 20130111, end: 20130114

REACTIONS (1)
  - Ischaemic stroke [Unknown]
